FAERS Safety Report 9128776 (Version 2)
Quarter: 2013Q2

REPORT INFORMATION
  Report Type: Spontaneous
  Country: US (occurrence: US)
  Receive Date: 20130228
  Receipt Date: 20130528
  Transmission Date: 20140414
  Serious: No
  Sender: FDA-Public Use
  Company Number: US-ABBOTT-12P-163-1022042-00

PATIENT
  Age: 66 Year
  Sex: Male

DRUGS (6)
  1. ANDROGEL [Suspect]
     Indication: BLOOD TESTOSTERONE DECREASED
     Route: 061
     Dates: start: 2012, end: 20130401
  2. ANDROGEL [Suspect]
     Route: 061
     Dates: start: 20130401, end: 20130416
  3. LISINOPRIL [Concomitant]
     Indication: HYPERTENSION
  4. NORVASC [Concomitant]
     Indication: HYPERTENSION
  5. BYSTOLIC [Concomitant]
     Indication: HYPERTENSION
  6. ANDRODERM [Concomitant]

REACTIONS (12)
  - Product quality issue [Unknown]
  - Drug ineffective [Not Recovered/Not Resolved]
  - Blood testosterone decreased [Not Recovered/Not Resolved]
  - Loss of consciousness [Recovered/Resolved]
  - Fall [Recovered/Resolved]
  - Skeletal injury [Recovered/Resolved]
  - Medication error [Unknown]
  - Road traffic accident [Unknown]
  - Hypoaesthesia [Unknown]
  - Back pain [Recovering/Resolving]
  - Intervertebral disc displacement [Not Recovered/Not Resolved]
  - Intervertebral disc degeneration [Not Recovered/Not Resolved]
